FAERS Safety Report 6240010-5 (Version None)
Quarter: 2009Q2

REPORT INFORMATION
  Report Type: 
  Country: None (occurrence: None)
  Receive Date: 20090623
  Receipt Date: 20090612
  Transmission Date: 20091009
  Serious: Yes (Other)
  Sender: FDA-Public Use
  Company Number: PHHY2009JP21919

PATIENT
  Age: 79 Year
  Sex: Female

DRUGS (4)
  1. CYCLOSPORINE [Suspect]
     Indication: GOODPASTURE'S SYNDROME
     Dosage: 50 MG/DAY
     Route: 048
  2. PREDNISOLONE [Concomitant]
     Indication: GOODPASTURE'S SYNDROME
     Dosage: 20 MG/DAY
     Route: 048
  3. PREDNISOLONE [Concomitant]
     Dosage: 4 MG/DAY
     Route: 048
  4. CYANAMIDE [Concomitant]
     Dosage: 50 MG/DAY

REACTIONS (3)
  - HERPES ZOSTER [None]
  - OLIGURIA [None]
  - PNEUMONIA CYTOMEGALOVIRAL [None]
